FAERS Safety Report 18371691 (Version 1)
Quarter: 2020Q4

REPORT INFORMATION
  Report Type: Spontaneous
  Country: GB (occurrence: GB)
  Receive Date: 20201012
  Receipt Date: 20201012
  Transmission Date: 20210114
  Serious: Yes (Other)
  Sender: FDA-Public Use
  Company Number: GB-BAYER-2020-212536

PATIENT
  Age: 39 Year
  Sex: Female
  Weight: 68.03 kg

DRUGS (6)
  1. MULTIVITAMINS [VITAMINS NOS] [Concomitant]
     Active Substance: VITAMINS
  2. LINSEED OIL [Concomitant]
     Active Substance: HERBALS\LINSEED OIL
  3. MAGNESIUM [Concomitant]
     Active Substance: MAGNESIUM
  4. SALBUTAMOL [Concomitant]
     Active Substance: ALBUTEROL
  5. MIRENA [Suspect]
     Active Substance: LEVONORGESTREL
     Indication: CONTRACEPTION
     Dosage: 20 ?G PER DAY,CONTINUOUSLY
     Route: 067
     Dates: end: 201907
  6. LORATADINE. [Concomitant]
     Active Substance: LORATADINE

REACTIONS (10)
  - Bone pain [Recovered/Resolved]
  - Urticaria [Not Recovered/Not Resolved]
  - Iron deficiency [Recovered/Resolved]
  - Mechanical urticaria [Not Recovered/Not Resolved]
  - Vitamin D deficiency [Recovered/Resolved with Sequelae]
  - Abdominal pain upper [Recovered/Resolved]
  - Loss of libido [Recovered/Resolved]
  - Faeces pale [Recovered/Resolved]
  - Fatigue [Recovered/Resolved with Sequelae]
  - Abnormal weight gain [Recovering/Resolving]
